FAERS Safety Report 4301401-2 (Version None)
Quarter: 2004Q1

REPORT INFORMATION
  Report Type: 
  Country: None (occurrence: None)
  Receive Date: 20040223
  Receipt Date: 20031218
  Transmission Date: 20041129
  Serious: No
  Sender: FDA-Public Use
  Company Number: US-GLAXOSMITHKLINE-A0443669A

PATIENT
  Age: 64 Year
  Sex: Female

DRUGS (13)
  1. NAVELBINE [Suspect]
     Route: 042
     Dates: start: 20030201
  2. HERCEPTIN [Concomitant]
  3. ARANESP [Concomitant]
  4. ZOMETA [Concomitant]
  5. COUMADIN [Concomitant]
  6. COZAAR [Concomitant]
  7. ATENOLOL [Concomitant]
  8. NORVASC [Concomitant]
  9. PROTONIX [Concomitant]
  10. VITAMIN C [Concomitant]
  11. VITAMIN E [Concomitant]
  12. COENZYME Q10 [Concomitant]
  13. MULTI-VITAMIN [Concomitant]

REACTIONS (1)
  - ABDOMINAL PAIN UPPER [None]
